FAERS Safety Report 5502225-0 (Version None)
Quarter: 2007Q4

REPORT INFORMATION
  Report Type: 
  Country: None (occurrence: None)
  Receive Date: 20071030
  Receipt Date: 20071017
  Transmission Date: 20080405
  Serious: Yes (Other)
  Sender: FDA-Public Use
  Company Number: US-ELI_LILLY_AND_COMPANY-US200710005323

PATIENT
  Sex: Female

DRUGS (2)
  1. BYETTA [Suspect]
     Dosage: 5 UG, UNKNOWN
     Dates: start: 20070101
  2. BYETTA [Suspect]
     Dosage: 10 UG, UNKNOWN
     Dates: start: 20070201

REACTIONS (2)
  - PANCREATIC CARCINOMA [None]
  - WEIGHT DECREASED [None]
